FAERS Safety Report 20166035 (Version 1)
Quarter: 2021Q4

REPORT INFORMATION
  Report Type: Spontaneous
  Country: US (occurrence: None)
  Receive Date: 20211208
  Receipt Date: 20211208
  Transmission Date: 20220303
  Serious: Yes (Other)
  Sender: FDA-Public Use
  Company Number: None

PATIENT
  Age: 58 Year
  Sex: Female

DRUGS (1)
  1. BAMLANIVIMAB\ETESEVIMAB [Suspect]
     Active Substance: BAMLANIVIMAB\ETESEVIMAB
     Indication: COVID-19
     Dates: start: 20211203, end: 20211203

REACTIONS (5)
  - Hypotension [None]
  - Oxygen saturation decreased [None]
  - Fatigue [None]
  - Dehydration [None]
  - Hypoxia [None]

NARRATIVE: CASE EVENT DATE: 20211203
